FAERS Safety Report 9303550 (Version 2)
Quarter: 2013Q3

REPORT INFORMATION
  Report Type: Report from Study
  Country: IT (occurrence: IT)
  Receive Date: 20130522
  Receipt Date: 20130719
  Transmission Date: 20140515
  Serious: Yes (Hospitalization)
  Sender: FDA-Public Use
  Company Number: IT-ROCHE-1224217

PATIENT
  Age: 66 Year
  Sex: Male
  Weight: 83 kg

DRUGS (3)
  1. VEMURAFENIB [Suspect]
     Indication: MALIGNANT MELANOMA
     Route: 048
     Dates: start: 20120613
  2. AMLODIPINE [Concomitant]
     Indication: HYPERTENSION
     Route: 048
  3. ROSUVASTATIN [Concomitant]
     Indication: DYSLIPIDAEMIA
     Route: 048

REACTIONS (3)
  - Metastases to spleen [Recovering/Resolving]
  - Splenic rupture [Recovering/Resolving]
  - Haematoma [Unknown]
